FAERS Safety Report 15550309 (Version 2)
Quarter: 2018Q4

REPORT INFORMATION
  Report Type: Spontaneous
  Country: US (occurrence: US)
  Receive Date: 20181025
  Receipt Date: 20181106
  Transmission Date: 20190205
  Serious: Yes (Hospitalization)
  Sender: FDA-Public Use
  Company Number: US-GLAXOSMITHKLINE-US2018189464

PATIENT
  Age: 24 Year
  Sex: Female

DRUGS (1)
  1. BENLYSTA [Suspect]
     Active Substance: BELIMUMAB
     Indication: SYSTEMIC LUPUS ERYTHEMATOSUS
     Dosage: 200 MG, WE
     Route: 058
     Dates: start: 201808

REACTIONS (7)
  - Injection site haemorrhage [Unknown]
  - Injection site bruising [Unknown]
  - Influenza like illness [Unknown]
  - Fatigue [Unknown]
  - Product complaint [Unknown]
  - Exposure via skin contact [Unknown]
  - Underdose [Unknown]

NARRATIVE: CASE EVENT DATE: 20181005
